FAERS Safety Report 23222504 (Version 1)
Quarter: 2023Q4

REPORT INFORMATION
  Report Type: Spontaneous
  Country: BR (occurrence: BR)
  Receive Date: 20231123
  Receipt Date: 20231123
  Transmission Date: 20240109
  Serious: Yes (Other)
  Sender: FDA-Public Use
  Company Number: BR-ORGANON-O2303BRA000200

PATIENT
  Sex: Female

DRUGS (6)
  1. COZAAR [Suspect]
     Active Substance: LOSARTAN POTASSIUM
     Indication: Hypertension
     Dosage: 50 MG TO TAKE IN THE MORNING AND AT NIGHT (2 TABLETS DAILY)
     Route: 048
     Dates: start: 2017, end: 202302
  2. COZAAR [Suspect]
     Active Substance: LOSARTAN POTASSIUM
     Dosage: 50 MG TO TAKE IN THE MORNING AND AT NIGHT (2 TABLETS DAILY)
     Route: 048
     Dates: start: 20230226, end: 2023
  3. COZAAR [Suspect]
     Active Substance: LOSARTAN POTASSIUM
     Dosage: 50 MG, ONLY IN THE MORNING
     Route: 048
     Dates: start: 2023
  4. CRESTOR [Concomitant]
     Active Substance: ROSUVASTATIN CALCIUM
     Indication: Blood cholesterol increased
     Dosage: 1 TABLET DAILY AT NIGHT
     Route: 048
     Dates: start: 2017, end: 20230223
  5. ASPIRIN [Concomitant]
     Active Substance: ASPIRIN
     Indication: Anticoagulant therapy
     Dosage: 1 TABLET A DAY AFTER LUNCH
     Route: 048
     Dates: start: 2017, end: 202302
  6. ASPIRIN [Concomitant]
     Active Substance: ASPIRIN
     Dosage: 1 TABLET A DAY AFTER LUNCH
     Route: 048
     Dates: start: 202302

REACTIONS (12)
  - Choking [Recovered/Resolved]
  - Throat irritation [Recovered/Resolved]
  - Dry throat [Recovered/Resolved]
  - Throat irritation [Unknown]
  - Hiccups [Unknown]
  - Dyspepsia [Recovered/Resolved]
  - Cough [Recovered/Resolved]
  - Intentional product misuse [Unknown]
  - Counterfeit product administered [Unknown]
  - Suspected counterfeit product [Unknown]
  - Product label issue [Unknown]
  - Product availability issue [Unknown]

NARRATIVE: CASE EVENT DATE: 20210101
